FAERS Safety Report 14026615 (Version 2)
Quarter: 2017Q4

REPORT INFORMATION
  Report Type: Spontaneous
  Country: FR (occurrence: FR)
  Receive Date: 20170929
  Receipt Date: 20171109
  Transmission Date: 20180321
  Serious: Yes (Other)
  Sender: FDA-Public Use
  Company Number: FR-MERCK KGAA-2028309

PATIENT
  Age: 68 Year
  Sex: Female

DRUGS (5)
  1. NOVOTHYROX [Suspect]
     Active Substance: LEVOTHYROXINE SODIUM
     Indication: THYROIDECTOMY
     Route: 048
     Dates: start: 2017, end: 20170905
  2. SPAGULAX [Concomitant]
     Active Substance: PLANTAGO OVATA SEED
  3. XALATAN [Concomitant]
     Active Substance: LATANOPROST
  4. PREVISCAN (FLUINDIONE) [Concomitant]
     Active Substance: FLUINDIONE
  5. RYTHMOL [Concomitant]
     Active Substance: PROPAFENONE HYDROCHLORIDE

REACTIONS (8)
  - Asthenia [Recovered/Resolved]
  - Arrhythmia [Recovering/Resolving]
  - Hot flush [Recovered/Resolved]
  - Depression [Recovered/Resolved]
  - Blood thyroid stimulating hormone increased [Recovered/Resolved]
  - Abnormal weight gain [Recovered/Resolved]
  - Anxiety [Recovered/Resolved]
  - Vertigo [Recovered/Resolved]

NARRATIVE: CASE EVENT DATE: 201703
